FAERS Safety Report 9898980 (Version 1)
Quarter: 2014Q1

REPORT INFORMATION
  Report Type: Spontaneous
  Country: FR (occurrence: FR)
  Receive Date: 20140214
  Receipt Date: 20140214
  Transmission Date: 20141002
  Serious: Yes (Hospitalization)
  Sender: FDA-Public Use
  Company Number: FR-GLAXOSMITHKLINE-B0965943A

PATIENT
  Age: 74 Year
  Sex: Female
  Weight: 92 kg

DRUGS (2)
  1. ZOPHREN [Suspect]
     Indication: PREMEDICATION
     Dosage: 8MG WEEKLY
     Route: 042
     Dates: start: 20131119, end: 20131203
  2. MUFORAN [Suspect]
     Indication: MALIGNANT MELANOMA
     Dosage: 100MGM2 WEEKLY
     Route: 042
     Dates: start: 20131119, end: 20131203

REACTIONS (12)
  - Eczema [Not Recovered/Not Resolved]
  - Rash erythematous [Not Recovered/Not Resolved]
  - Pruritus [Not Recovered/Not Resolved]
  - Pancytopenia [Not Recovered/Not Resolved]
  - Epistaxis [Recovered/Resolved]
  - Gingival bleeding [Unknown]
  - Haematoma [Unknown]
  - Haematuria [Unknown]
  - Rectal haemorrhage [Unknown]
  - Purpura [Unknown]
  - Dizziness [Unknown]
  - Headache [Unknown]
